FAERS Safety Report 7337597-8 (Version None)
Quarter: 2011Q1

REPORT INFORMATION
  Report Type: 
  Country: None (occurrence: None)
  Receive Date: 20110228
  Receipt Date: 20110210
  Transmission Date: 20110831
  Serious: Yes (Hospitalization)
  Sender: FDA-Public Use
  Company Number: DSJ-2011-00556

PATIENT
  Age: 79 Year
  Sex: Female
  Weight: 48.3 kg

DRUGS (5)
  1. MYSLEE (ZOLPIDEM TARTRATE) (TABLET) (ZOLPIDEM TARTRATE) [Concomitant]
  2. OLMETEC (OLMESARTAN MEDOXOMIL) (TABLET) (OLMESARTAN MEDOXOMOL) [Suspect]
     Indication: HYPERTENSION
     Dosage: 20 MG (20 MG, 1 IN 1 D), PER ORAL
     Route: 048
     Dates: start: 20100701, end: 20101203
  3. LAC-B (LACTOBACILLUS BIFIDUS, LYOPHLIZIED) (ORAL POWDER) (LACTOBACILLU [Concomitant]
  4. GASMOTIN (MOSAPRIDE CITRATE) (TABLET) (MOSAPRIDE CITRATE) [Concomitant]
  5. MAGNESIUM OXIDE (MAGNESIUM OXIDE) [Concomitant]

REACTIONS (2)
  - JAUNDICE [None]
  - LIVER DISORDER [None]
